FAERS Safety Report 20040470 (Version 1)
Quarter: 2021Q4

REPORT INFORMATION
  Report Type: Spontaneous
  Country: US (occurrence: None)
  Receive Date: 20211106
  Receipt Date: 20211106
  Transmission Date: 20220303
  Serious: Yes (Other)
  Sender: FDA-Public Use
  Company Number: None

PATIENT
  Age: 62 Year
  Sex: Female
  Weight: 74.25 kg

DRUGS (9)
  1. APLENZIN [Suspect]
     Active Substance: BUPROPION HYDROBROMIDE
     Indication: Depression
     Route: 048
     Dates: start: 20210915, end: 20211023
  2. LISINOPRIL [Concomitant]
     Active Substance: LISINOPRIL
  3. LIPITOR [Concomitant]
     Active Substance: ATORVASTATIN CALCIUM
  4. BUSPAR [Concomitant]
     Active Substance: BUSPIRONE HYDROCHLORIDE
  5. GABAPENTIN [Concomitant]
     Active Substance: GABAPENTIN
  6. ASPIRIN [Concomitant]
     Active Substance: ASPIRIN
  7. FISH OIL [Concomitant]
     Active Substance: FISH OIL
  8. VITAMIN D NOS [Concomitant]
     Active Substance: VITAMIN D NOS
  9. NEXIUM [Concomitant]
     Active Substance: ESOMEPRAZOLE MAGNESIUM

REACTIONS (2)
  - Headache [None]
  - Hypertension [None]

NARRATIVE: CASE EVENT DATE: 20211024
